FAERS Safety Report 6986611-8 (Version None)
Quarter: 2010Q3

REPORT INFORMATION
  Report Type: 
  Country: None (occurrence: None)
  Receive Date: 20100915
  Receipt Date: 20090714
  Transmission Date: 20110219
  Serious: No
  Sender: FDA-Public Use
  Company Number: US-WYE-H10157609

PATIENT
  Sex: Female

DRUGS (6)
  1. PRISTIQ [Suspect]
     Indication: DEPRESSION
     Route: 048
     Dates: start: 20090708
  2. PRISTIQ [Suspect]
     Indication: ANXIETY
  3. DIOVAN [Concomitant]
  4. VYTORIN [Concomitant]
  5. LEVOXYL [Concomitant]
  6. CLONAZEPAM [Concomitant]

REACTIONS (2)
  - CONSTIPATION [None]
  - DRY MOUTH [None]
